FAERS Safety Report 7656655-1 (Version None)
Quarter: 2011Q3

REPORT INFORMATION
  Report Type: 
  Country: None (occurrence: None)
  Receive Date: 20110801
  Receipt Date: 20110728
  Transmission Date: 20111222
  Serious: Yes (Hospitalization, Other)
  Sender: FDA-Public Use
  Company Number: 2010SP064942

PATIENT
  Age: 11 Year
  Sex: Male

DRUGS (2)
  1. TEMODAL [Suspect]
     Indication: MEDULLOBLASTOMA RECURRENT
     Dosage: PO
     Route: 048
  2. ETOPOSIDE [Suspect]
     Indication: MEDULLOBLASTOMA RECURRENT
     Dosage: PO
     Route: 048

REACTIONS (5)
  - METASTASES TO LIVER [None]
  - FOCAL NODULAR HYPERPLASIA [None]
  - MEDULLOBLASTOMA RECURRENT [None]
  - HEPATIC NEOPLASM [None]
  - PNEUMONIA [None]
